FAERS Safety Report 10378232 (Version 1)
Quarter: 2014Q3

REPORT INFORMATION
  Report Type: Spontaneous
  Country: JP (occurrence: JP)
  Receive Date: 20140812
  Receipt Date: 20140812
  Transmission Date: 20150326
  Serious: Yes (Other)
  Sender: FDA-Public Use
  Company Number: JP-PFIZER INC-2014224412

PATIENT
  Age: 25 Year
  Sex: Male

DRUGS (2)
  1. CELECOX [Suspect]
     Active Substance: CELECOXIB
     Dosage: 1000 MG, 1X/DAY
     Route: 048
     Dates: start: 20140727
  2. CELECOX [Suspect]
     Active Substance: CELECOXIB
     Dosage: STRENGTH 100MG
     Route: 048

REACTIONS (7)
  - Tremor [Unknown]
  - Intentional overdose [Unknown]
  - Vomiting [Unknown]
  - Suicide attempt [Unknown]
  - Somnolence [Unknown]
  - Dizziness [Unknown]
  - Nausea [Unknown]

NARRATIVE: CASE EVENT DATE: 20140727
